FAERS Safety Report 7994217-7 (Version None)
Quarter: 2011Q4

REPORT INFORMATION
  Report Type: 
  Country: None (occurrence: None)
  Receive Date: 20111220
  Receipt Date: 20111209
  Transmission Date: 20120403
  Serious: Yes (Other)
  Sender: FDA-Public Use
  Company Number: IT-BRISTOL-MYERS SQUIBB COMPANY-16284606

PATIENT
  Age: 69 Year
  Sex: Male

DRUGS (4)
  1. ROSUVASTATIN [Concomitant]
  2. METFORMIN HCL [Concomitant]
  3. RAMIPRIL + HCTZ [Concomitant]
  4. ONGLYZA [Suspect]
     Dosage: SUSPENDED THERAPY ON 30NOV11
     Dates: start: 20111005

REACTIONS (2)
  - OEDEMA MOUTH [None]
  - SWELLING FACE [None]
